FAERS Safety Report 6173060-8 (Version None)
Quarter: 2009Q2

REPORT INFORMATION
  Report Type: 
  Country: None (occurrence: None)
  Receive Date: 20090428
  Receipt Date: 20090415
  Transmission Date: 20091009
  Serious: Yes (Other)
  Sender: FDA-Public Use
  Company Number: VAL_00254_2009

PATIENT
  Age: 52 Year
  Sex: Female

DRUGS (1)
  1. CARBAMAZEPINE [Suspect]
     Indication: FACIAL PAIN
     Dosage: (200 MG TID) ; (200 MG QD)

REACTIONS (2)
  - ALOPECIA EFFLUVIUM [None]
  - DERMATITIS PSORIASIFORM [None]
